FAERS Safety Report 6126301-7 (Version None)
Quarter: 2009Q1

REPORT INFORMATION
  Report Type: 
  Country: None (occurrence: None)
  Receive Date: 20090320
  Receipt Date: 20090313
  Transmission Date: 20090719
  Serious: Yes (Hospitalization)
  Sender: FDA-Public Use
  Company Number: JP-AVENTIS-200911241EU

PATIENT
  Age: 77 Year
  Sex: Female

DRUGS (9)
  1. DANCOR [Suspect]
     Dosage: DOSE: UNK
     Route: 048
     Dates: start: 20080801
  2. LOVENOX [Suspect]
     Indication: THROMBOSIS
     Dosage: DOSE: UNK
     Route: 058
     Dates: start: 20081201
  3. LANSOPRAZOLE [Suspect]
     Indication: PROPHYLAXIS
     Dosage: DOSE: UNK
     Route: 048
     Dates: start: 20081201
  4. XELODA [Suspect]
     Route: 048
     Dates: start: 20080930
  5. CONCOR                             /00802602/ [Suspect]
     Indication: HYPERTENSION
     Dosage: DOSE: UNK
     Route: 048
     Dates: start: 20080801
  6. REQUIP [Suspect]
     Indication: RESTLESS LEGS SYNDROME
     Dosage: DOSE: UNK
     Route: 048
     Dates: start: 20081218
  7. THYREX [Suspect]
     Indication: THYROIDECTOMY
     Dosage: DOSE: UNK
     Route: 048
     Dates: start: 20070622
  8. PANTOLOC                           /01263201/ [Suspect]
     Indication: PROPHYLAXIS
     Dosage: DOSE: UNK
     Route: 048
     Dates: start: 20080701, end: 20081201
  9. CAL D VITA [Suspect]
     Indication: OSTEOPOROSIS
     Dosage: DOSE: UNK
     Route: 048
     Dates: start: 20080701

REACTIONS (2)
  - CIRCULATORY COLLAPSE [None]
  - VENOUS THROMBOSIS [None]
